FAERS Safety Report 6963879-5 (Version None)
Quarter: 2010Q3

REPORT INFORMATION
  Report Type: 
  Country: None (occurrence: None)
  Receive Date: 20100831
  Receipt Date: 20100818
  Transmission Date: 20110219
  Serious: Yes (Hospitalization)
  Sender: FDA-Public Use
  Company Number: DSM-2010-01169

PATIENT
  Age: 71 Year
  Sex: Female

DRUGS (4)
  1. SEVIKAR (OLMESARTAN MEDOXOMIL, AMLODIPINE BESILATE) (TABLET) (OLMESART [Suspect]
     Indication: HYPERTENSION
     Dosage: 20/5 MG, ORAL
     Route: 048
     Dates: start: 20100501
  2. SINTRON (ACENOCOUMAROL) (ACENOCOUMAROL) [Concomitant]
  3. DIGOXIN [Concomitant]
  4. BISOPROLOL FUMARATE [Concomitant]

REACTIONS (4)
  - ARTHROPATHY [None]
  - BLOOD ALKALINE PHOSPHATASE INCREASED [None]
  - PANCREATITIS ACUTE [None]
  - TRANSAMINASES INCREASED [None]
